FAERS Safety Report 6366516-6 (Version None)
Quarter: 2009Q3

REPORT INFORMATION
  Report Type: 
  Country: None (occurrence: None)
  Receive Date: 20090921
  Receipt Date: 20090909
  Transmission Date: 20100115
  Serious: Yes (Life-Threatening, Hospitalization, Other)
  Sender: FDA-Public Use
  Company Number: FI-BAYER-200930178GPV

PATIENT
  Age: 35 Year
  Sex: Female

DRUGS (2)
  1. CIPROFLOXACIN HCL [Suspect]
     Indication: PYELONEPHRITIS
     Dosage: UNIT DOSE: 500 MG
     Route: 048
     Dates: start: 20090730, end: 20090809
  2. ZYPREXA [Interacting]
     Indication: ANXIETY
     Dosage: TOTAL DAILY DOSE: 20 MG  UNIT DOSE: 10 MG
     Route: 048
     Dates: start: 20090701, end: 20090810

REACTIONS (3)
  - ANURIA [None]
  - NEUROLEPTIC MALIGNANT SYNDROME [None]
  - PYREXIA [None]
